FAERS Safety Report 8462087-9 (Version None)
Quarter: 2012Q2

REPORT INFORMATION
  Report Type: 
  Country: None (occurrence: None)
  Receive Date: 20120625
  Receipt Date: 20120614
  Transmission Date: 20120825
  Serious: Yes (Other)
  Sender: FDA-Public Use
  Company Number: US-JNJFOC-20120607831

PATIENT
  Sex: Male
  Weight: 70.31 kg

DRUGS (7)
  1. CONCERTA [Suspect]
     Route: 048
  2. SEROQUEL [Concomitant]
  3. CONCERTA [Suspect]
     Route: 048
  4. CONCERTA [Suspect]
     Route: 048
     Dates: start: 20090101
  5. CONCERTA [Suspect]
     Route: 048
  6. CONCERTA [Suspect]
     Indication: ATTENTION DEFICIT/HYPERACTIVITY DISORDER
     Route: 048
  7. CONCERTA [Suspect]
     Route: 048

REACTIONS (10)
  - RIB FRACTURE [None]
  - INJURY [None]
  - ACCIDENT [None]
  - AMNESIA [None]
  - CONDITION AGGRAVATED [None]
  - DRUG DOSE OMISSION [None]
  - SUICIDAL IDEATION [None]
  - HEAD INJURY [None]
  - DEFORMITY OF ORBIT [None]
  - DRUG INEFFECTIVE [None]
